FAERS Safety Report 10183262 (Version 1)
Quarter: 2014Q2

REPORT INFORMATION
  Report Type: Report from Study
  Country: DE (occurrence: DE)
  Receive Date: 20140520
  Receipt Date: 20140520
  Transmission Date: 20141212
  Serious: Yes (Hospitalization)
  Sender: FDA-Public Use
  Company Number: DE-SA-2014SA063021

PATIENT
  Sex: Male
  Weight: 66 kg

DRUGS (9)
  1. ZALTRAP [Suspect]
     Indication: COLORECTAL CANCER METASTATIC
     Route: 042
     Dates: start: 20140212, end: 20140212
  2. ZALTRAP [Suspect]
     Indication: COLORECTAL CANCER METASTATIC
     Route: 042
     Dates: start: 20140514, end: 20140514
  3. FOLINIC ACID [Concomitant]
     Indication: COLORECTAL CANCER METASTATIC
     Dates: start: 20140212, end: 20140212
  4. FOLINIC ACID [Concomitant]
     Indication: COLORECTAL CANCER METASTATIC
     Dates: start: 20140514, end: 20140514
  5. 5-FU [Concomitant]
     Indication: COLORECTAL CANCER METASTATIC
     Dates: start: 20140212, end: 20140212
  6. 5-FU [Concomitant]
     Indication: COLORECTAL CANCER METASTATIC
     Dates: start: 20140514, end: 20140514
  7. IRINOTECAN [Concomitant]
     Indication: COLORECTAL CANCER METASTATIC
     Dates: start: 20140212, end: 20140212
  8. IRINOTECAN [Concomitant]
     Indication: COLORECTAL CANCER METASTATIC
     Dates: start: 20140514, end: 20140514
  9. LOPEDIUM [Concomitant]
     Indication: DIARRHOEA
     Route: 048

REACTIONS (1)
  - Proctitis [Unknown]
